FAERS Safety Report 9294274 (Version 2)
Quarter: 2013Q2

REPORT INFORMATION
  Report Type: Spontaneous
  Country: US (occurrence: US)
  Receive Date: 20130517
  Receipt Date: 20130607
  Transmission Date: 20140414
  Serious: No
  Sender: FDA-Public Use
  Company Number: US-009507513-1305USA009091

PATIENT
  Age: 66 Year
  Sex: Female
  Weight: 68.27 kg

DRUGS (3)
  1. ASMANEX TWISTHALER [Suspect]
     Dosage: SAMPLE USE
  2. ASMANEX TWISTHALER [Suspect]
     Dosage: 110 MICROGRAM, QD
     Route: 055
     Dates: start: 20130414
  3. ASMANEX TWISTHALER [Suspect]
     Dosage: 110 MICROGRAM, QD
     Route: 055
     Dates: end: 20130511

REACTIONS (4)
  - Wheezing [Recovered/Resolved]
  - Drug dose omission [Unknown]
  - Product quality issue [Unknown]
  - Product quality issue [Unknown]
